FAERS Safety Report 6384236-9 (Version None)
Quarter: 2009Q4

REPORT INFORMATION
  Report Type: 
  Country: None (occurrence: None)
  Receive Date: 20091001
  Receipt Date: 20090922
  Transmission Date: 20100525
  Serious: Yes (Life-Threatening)
  Sender: FDA-Public Use
  Company Number: B0595711A

PATIENT
  Age: 22 Year
  Sex: Female

DRUGS (1)
  1. CLENIL MODULITE [Suspect]
     Route: 055

REACTIONS (1)
  - ASTHMA [None]
